FAERS Safety Report 8048002-0 (Version None)
Quarter: 2012Q1

REPORT INFORMATION
  Report Type: 
  Country: None (occurrence: None)
  Receive Date: 20120116
  Receipt Date: 20110902
  Transmission Date: 20120608
  Serious: No
  Sender: FDA-Public Use
  Company Number: GB-ALLERGAN-1110735US

PATIENT
  Age: 55 Year
  Sex: Male
  Weight: 82.54 kg

DRUGS (3)
  1. BOTULINUM TOXIN TYPE A [Suspect]
     Indication: BLEPHAROSPASM
     Dosage: UNK
     Dates: start: 20000101, end: 20000101
  2. BOTULINUM TOXIN TYPE A [Suspect]
     Indication: HEAD TITUBATION
  3. BOTULINUM TOXIN TYPE A [Suspect]
     Indication: TREMOR
     Dosage: UNK

REACTIONS (12)
  - FEELING HOT [None]
  - DYSPNOEA [None]
  - FLUSHING [None]
  - ASTHENIA [None]
  - FEELING ABNORMAL [None]
  - HEAD TITUBATION [None]
  - INFLUENZA LIKE ILLNESS [None]
  - FATIGUE [None]
  - PYREXIA [None]
  - TREMOR [None]
  - BRADYPHRENIA [None]
  - GAIT DISTURBANCE [None]
